FAERS Safety Report 7908973-7 (Version None)
Quarter: 2011Q4

REPORT INFORMATION
  Report Type: 
  Country: None (occurrence: None)
  Receive Date: 20111111
  Receipt Date: 20111031
  Transmission Date: 20120403
  Serious: Yes (Other)
  Sender: FDA-Public Use
  Company Number: US-UCBSA-044650

PATIENT
  Sex: Male

DRUGS (2)
  1. BUTRANS [Suspect]
     Dosage: 10 MCG A DAY
  2. LORTAB [Suspect]
     Dosage: 2 LORTAB A DAY

REACTIONS (1)
  - DRUG WITHDRAWAL SYNDROME [None]
